FAERS Safety Report 16435217 (Version 2)
Quarter: 2019Q3

REPORT INFORMATION
  Report Type: Report from Study
  Country: US (occurrence: US)
  Receive Date: 20190614
  Receipt Date: 20190923
  Transmission Date: 20191004
  Serious: No
  Sender: FDA-Public Use
  Company Number: PHEH2019US025175

PATIENT
  Sex: Female

DRUGS (1)
  1. COSENTYX [Suspect]
     Active Substance: SECUKINUMAB
     Indication: ANKYLOSING SPONDYLITIS
     Dosage: 300 MG, QMO
     Route: 058

REACTIONS (1)
  - Injection site pain [Unknown]
